FAERS Safety Report 4266290-3 (Version None)
Quarter: 2004Q1

REPORT INFORMATION
  Report Type: 
  Country: None (occurrence: None)
  Receive Date: 20040107
  Receipt Date: 20031217
  Transmission Date: 20041129
  Serious: Yes (Hospitalization)
  Sender: FDA-Public Use
  Company Number: WAES 0312GBR00173

PATIENT
  Sex: Male

DRUGS (5)
  1. CIPROFLOXACIN [Suspect]
  2. CIPROFLOXACIN [Suspect]
     Indication: PROSTATITIS
  3. INDOCIN SR [Suspect]
     Route: 048
  4. INDOCIN SR [Suspect]
     Indication: PROSTATITIS
     Route: 048
  5. LISINOPRIL [Concomitant]

REACTIONS (5)
  - ARRHYTHMIA SUPRAVENTRICULAR [None]
  - DIZZINESS [None]
  - FATIGUE [None]
  - LOSS OF CONSCIOUSNESS [None]
  - VENTRICULAR ARRHYTHMIA [None]
